FAERS Safety Report 7339817-2 (Version None)
Quarter: 2011Q1

REPORT INFORMATION
  Report Type: 
  Country: None (occurrence: None)
  Receive Date: 20110304
  Receipt Date: 20110304
  Transmission Date: 20110831
  Serious: Yes (Other)
  Sender: FDA-Public Use
  Company Number: None

PATIENT
  Age: 64 Year
  Sex: Male
  Weight: 86.637 kg

DRUGS (1)
  1. ROSUVASTATIN [Suspect]
     Indication: BLOOD CHOLESTEROL
     Dosage: 10MG DAILY
     Dates: start: 20101201, end: 20101230

REACTIONS (4)
  - INSOMNIA [None]
  - ARTHRALGIA [None]
  - PAIN IN EXTREMITY [None]
  - GAIT DISTURBANCE [None]
